FAERS Safety Report 4527873-6 (Version None)
Quarter: 2004Q4

REPORT INFORMATION
  Report Type: 
  Country: None (occurrence: None)
  Receive Date: 20041215
  Receipt Date: 20041001
  Transmission Date: 20050328
  Serious: Yes (Death, Other)
  Sender: FDA-Public Use
  Company Number: FR-BRISTOL-MYERS SQUIBB COMPANY-12718706

PATIENT
  Age: 63 Year
  Sex: Male

DRUGS (3)
  1. ZERIT [Suspect]
     Route: 048
     Dates: start: 20040726
  2. VIREAD [Suspect]
     Route: 048
     Dates: start: 20040726
  3. CRIXIVAN [Suspect]
     Route: 048
     Dates: start: 20040726

REACTIONS (9)
  - HYPERKALAEMIA [None]
  - HYPONATRAEMIA [None]
  - HYPOTENSION [None]
  - LACTIC ACIDOSIS [None]
  - PRODUCTIVE COUGH [None]
  - PROTHROMBIN TIME ABNORMAL [None]
  - RENAL FAILURE [None]
  - SHOCK [None]
  - THROMBOCYTOPENIA [None]
